FAERS Safety Report 6609731-6 (Version None)
Quarter: 2010Q1

REPORT INFORMATION
  Report Type: 
  Country: None (occurrence: None)
  Receive Date: 20100302
  Receipt Date: 20100218
  Transmission Date: 20100710
  Serious: Yes (Hospitalization)
  Sender: FDA-Public Use
  Company Number: AT-GENZYME-CLOF-1000870

PATIENT
  Sex: Male
  Weight: 35 kg

DRUGS (3)
  1. EVOLTRA [Suspect]
     Indication: ACUTE LYMPHOCYTIC LEUKAEMIA
     Dosage: 51.6 MG/M2, QD
     Route: 042
     Dates: start: 20100119, end: 20100122
  2. CYCLOPHOSPHAMIDE [Suspect]
     Indication: ACUTE LYMPHOCYTIC LEUKAEMIA
     Dosage: 516 MG, QD
     Route: 065
     Dates: start: 20100119, end: 20100122
  3. ETOPOSIDE [Suspect]
     Indication: ACUTE LYMPHOCYTIC LEUKAEMIA
     Dosage: 191.5 MG, QD
     Route: 065
     Dates: start: 20100119, end: 20100122

REACTIONS (1)
  - LIVER DISORDER [None]
